FAERS Safety Report 12148224 (Version 1)
Quarter: 2016Q1

REPORT INFORMATION
  Report Type: Spontaneous
  Country: US (occurrence: None)
  Receive Date: 20160304
  Receipt Date: 20160304
  Transmission Date: 20160526
  Serious: Yes (Other)
  Sender: FDA-Public Use
  Company Number: US-MDT-ADR-2016-00339

PATIENT
  Age: 48 Year
  Sex: Female

DRUGS (1)
  1. BACLOFEN INTRATHECAL 500MCG/ML [Suspect]
     Active Substance: BACLOFEN
     Indication: MUSCLE SPASTICITY
     Dosage: 236MCG

REACTIONS (3)
  - Twiddler^s syndrome [None]
  - Device inversion [None]
  - Muscle spasticity [None]
